FAERS Safety Report 24614146 (Version 1)
Quarter: 2024Q4

REPORT INFORMATION
  Report Type: Spontaneous
  Country: TH (occurrence: TH)
  Receive Date: 20241113
  Receipt Date: 20241113
  Transmission Date: 20250115
  Serious: Yes (Hospitalization, Other)
  Sender: ASTELLAS
  Company Number: TH-ASTELLAS-2024-AER-016722

PATIENT
  Age: 44 Year
  Sex: Female

DRUGS (24)
  1. PROGRAF [Suspect]
     Active Substance: TACROLIMUS
     Indication: Renal transplant
     Dosage: 2/1.5
     Route: 065
  2. PROGRAF [Suspect]
     Active Substance: TACROLIMUS
     Dosage: 1.5/1.5, 5.5 MONTHS AFTER POST-OPERATION
     Route: 065
  3. PROGRAF [Suspect]
     Active Substance: TACROLIMUS
     Dosage: 1.5/1.5, POST-OPERATION 2 MONTHS
     Route: 065
  4. PROGRAF [Suspect]
     Active Substance: TACROLIMUS
     Dosage: 1.5/2.0, ON DAY 14
     Route: 065
     Dates: start: 20231127
  5. PROGRAF [Suspect]
     Active Substance: TACROLIMUS
     Dosage: 1.5/1.5 ON DAY 1
     Route: 065
     Dates: start: 20231114
  6. PROGRAF [Suspect]
     Active Substance: TACROLIMUS
     Dosage: 1.5/1.5, ON DAY 3
     Route: 065
     Dates: start: 20231116
  7. PROGRAF [Suspect]
     Active Substance: TACROLIMUS
     Dosage: 1.5/1.5, ON DAY 8
     Route: 065
     Dates: start: 20231121
  8. PROGRAF [Suspect]
     Active Substance: TACROLIMUS
     Dosage: 1.5/2.0, ON DAY 22, D/C
     Route: 065
  9. PROGRAF [Suspect]
     Active Substance: TACROLIMUS
     Dosage: 1.5/2
     Route: 065
     Dates: start: 20241022
  10. MYCOPHENOLATE MOFETIL [Concomitant]
     Active Substance: MYCOPHENOLATE MOFETIL
     Indication: Product used for unknown indication
     Route: 065
  11. MYCOPHENOLATE MOFETIL [Concomitant]
     Active Substance: MYCOPHENOLATE MOFETIL
     Dosage: POST-OPERATION 2 MONTHS
     Route: 065
  12. MYCOPHENOLATE MOFETIL [Concomitant]
     Active Substance: MYCOPHENOLATE MOFETIL
     Dosage: 5.5 MONTHS AFTER POST-OPERATION
     Route: 065
  13. MYCOPHENOLATE MOFETIL [Concomitant]
     Active Substance: MYCOPHENOLATE MOFETIL
     Dosage: ON DAY 1
     Route: 065
     Dates: start: 20231114
  14. MYCOPHENOLATE MOFETIL [Concomitant]
     Active Substance: MYCOPHENOLATE MOFETIL
     Route: 065
     Dates: start: 20241022
  15. PREDNISOLONE [Concomitant]
     Active Substance: PREDNISOLONE
     Indication: Product used for unknown indication
     Dosage: (5) 3*1 ONCE DAILY
     Route: 065
  16. PREDNISOLONE [Concomitant]
     Active Substance: PREDNISOLONE
     Dosage: (5) 2*1 POST-OPERATION 2 MONTHS
     Route: 065
  17. PREDNISOLONE [Concomitant]
     Active Substance: PREDNISOLONE
     Dosage: 1*1, POST-OPERATION 2 MONTHS
     Route: 065
  18. PREDNISOLONE [Concomitant]
     Active Substance: PREDNISOLONE
     Dosage: (5) 1*1, 5.5 MONTHS AFTER POST-OPERATION
     Route: 065
  19. PREDNISOLONE [Concomitant]
     Active Substance: PREDNISOLONE
     Dosage: (5) 1*1, ON DAY 3
     Route: 065
     Dates: start: 20231116
  20. PREDNISOLONE [Concomitant]
     Active Substance: PREDNISOLONE
     Dosage: (5) 1*1, ON DAY 14
     Route: 065
     Dates: start: 20231127
  21. PREDNISOLONE [Concomitant]
     Active Substance: PREDNISOLONE
     Dosage: (5) 1*1, ON DAY 22, D/C
     Route: 065
  22. PREDNISOLONE [Concomitant]
     Active Substance: PREDNISOLONE
     Dosage: (5) 1*1, ON DAY 1
     Route: 065
     Dates: start: 20231114
  23. PREDNISOLONE [Concomitant]
     Active Substance: PREDNISOLONE
     Dosage: (5) 1*1, ON DAY 8
     Route: 065
     Dates: start: 20231121
  24. PREDNISOLONE [Concomitant]
     Active Substance: PREDNISOLONE
     Dosage: 1*1
     Route: 065
     Dates: start: 20241022

REACTIONS (6)
  - Polycythaemia [Unknown]
  - Complications of transplanted kidney [Recovering/Resolving]
  - Ureteritis [Recovering/Resolving]
  - Adenovirus interstitial nephritis [Unknown]
  - Renal infarct [Unknown]
  - Abscess limb [Unknown]

NARRATIVE: CASE EVENT DATE: 20230101
